FAERS Safety Report 8101801-9 (Version None)
Quarter: 2012Q1

REPORT INFORMATION
  Report Type: 
  Country: None (occurrence: None)
  Receive Date: 20120131
  Receipt Date: 20120124
  Transmission Date: 20120608
  Serious: Yes (Other)
  Sender: FDA-Public Use
  Company Number: PHEH2012US002044

PATIENT
  Sex: Female

DRUGS (2)
  1. GILENYA [Suspect]
     Indication: MULTIPLE SCLEROSIS
     Dosage: 0.5 MG, QD
     Route: 048
     Dates: start: 20110401
  2. SYNTHROID [Concomitant]

REACTIONS (6)
  - BLOOD URINE PRESENT [None]
  - PALPITATIONS [None]
  - CHROMATURIA [None]
  - URINE ODOUR ABNORMAL [None]
  - DYSPNOEA [None]
  - HEPATIC ENZYME INCREASED [None]
